FAERS Safety Report 10877331 (Version 1)
Quarter: 2015Q1

REPORT INFORMATION
  Report Type: Spontaneous
  Country: US (occurrence: None)
  Receive Date: 20150224
  Receipt Date: 20150224
  Transmission Date: 20150721
  Serious: Yes (Other)
  Sender: FDA-Public Use
  Company Number: FK201500816

PATIENT
  Age: 47 Year
  Sex: Male

DRUGS (4)
  1. LITHIUM [Suspect]
     Active Substance: LITHIUM CARBONATE
     Indication: PRODUCT USED FOR UNKNOWN INDICATION
  2. DIVALPROATE (VALPROATE SODIUM) [Concomitant]
  3. QUETIAPINE [Concomitant]
     Active Substance: QUETIAPINE
  4. LACTULOSE (MANUFACTURER UNKNOWN)  (LACTULOSE) (LACTULOSE) [Suspect]
     Active Substance: LACTULOSE
     Indication: CONSTIPATION

REACTIONS (4)
  - Intentional self-injury [None]
  - Antipsychotic drug level increased [None]
  - Suicide attempt [None]
  - Diarrhoea [None]
